FAERS Safety Report 11030845 (Version 4)
Quarter: 2016Q2

REPORT INFORMATION
  Report Type: Spontaneous
  Country: CH (occurrence: CH)
  Receive Date: 20150415
  Receipt Date: 20160425
  Transmission Date: 20160815
  Serious: Yes (Other)
  Sender: FDA-Public Use
  Company Number: CH-PFIZER INC-2015120713

PATIENT
  Age: 75 Year
  Sex: Female
  Weight: 41 kg

DRUGS (8)
  1. BELOC-ZOK [Concomitant]
     Active Substance: METOPROLOL SUCCINATE
     Indication: CARDIAC FAILURE
     Dosage: 25 MG, 1X/DAY
     Route: 048
     Dates: start: 20141130
  2. REVATIO [Suspect]
     Active Substance: SILDENAFIL CITRATE
     Indication: SYSTEMIC SCLEROSIS
     Dosage: 5 MG, 3X/DAY
     Route: 048
     Dates: start: 20141130
  3. REVATIO [Suspect]
     Active Substance: SILDENAFIL CITRATE
     Indication: MYOCARDIAL ISCHAEMIA
  4. LISINOPRIL. [Suspect]
     Active Substance: LISINOPRIL
     Indication: CONGESTIVE CARDIOMYOPATHY
     Dosage: 7.5 MG, DAILY (5MG 1X/DAY AND 2.5MG 1X/DAY)
     Route: 048
     Dates: start: 20141130
  5. LISITRIL [Concomitant]
     Active Substance: LISINOPRIL
     Indication: CARDIAC FAILURE
     Dosage: 7.5 MG, DAILY (5MG 1X/DAY AND 2.5MG 1X/DAY)
     Route: 048
     Dates: start: 20141130
  6. TOREM [Concomitant]
     Active Substance: TORSEMIDE
     Dosage: 1 DF, 1X/DAY
  7. REVATIO [Suspect]
     Active Substance: SILDENAFIL CITRATE
     Indication: RAYNAUD^S PHENOMENON
  8. ALDACTONE [Concomitant]
     Active Substance: SPIRONOLACTONE
     Indication: CARDIAC FAILURE
     Dosage: 25 MG, 1X/DAY
     Route: 048
     Dates: start: 20141130

REACTIONS (4)
  - Hypotension [Not Recovered/Not Resolved]
  - Condition aggravated [Unknown]
  - Cardiac failure [Unknown]
  - Product use issue [Unknown]
